FAERS Safety Report 19088099 (Version 5)
Quarter: 2022Q2

REPORT INFORMATION
  Report Type: Report from Study
  Country: PA (occurrence: PA)
  Receive Date: 20210402
  Receipt Date: 20220503
  Transmission Date: 20220721
  Serious: Yes (Hospitalization, Other)
  Sender: FDA-Public Use
  Company Number: PA-002147023-NVSC2021PA070952

PATIENT

DRUGS (2)
  1. RUXOLITINIB [Suspect]
     Active Substance: RUXOLITINIB
     Indication: Primary myelofibrosis
     Dosage: 30 MG, BID
     Route: 048
     Dates: start: 20201104, end: 202103
  2. RUXOLITINIB [Suspect]
     Active Substance: RUXOLITINIB
     Dosage: 5 MG
     Route: 065

REACTIONS (28)
  - Myalgia [Unknown]
  - Peripheral swelling [Unknown]
  - COVID-19 [Unknown]
  - Coagulopathy [Unknown]
  - Condition aggravated [Unknown]
  - White blood cell count increased [Unknown]
  - Malaise [Unknown]
  - Hypoacusis [Unknown]
  - Laziness [Unknown]
  - Asthenia [Unknown]
  - Product dose omission in error [Unknown]
  - Fluid retention [Unknown]
  - Decreased appetite [Unknown]
  - Somnolence [Unknown]
  - Enuresis [Unknown]
  - Haemoglobin decreased [Unknown]
  - Urinary incontinence [Unknown]
  - Pain [Unknown]
  - Pruritus [Unknown]
  - Laboratory test abnormal [Unknown]
  - Leukaemia [Unknown]
  - Pallor [Unknown]
  - Fall [Unknown]
  - Platelet count decreased [Unknown]
  - Prostatic disorder [Unknown]
  - Haemorrhage urinary tract [Unknown]
  - Hypertension [Unknown]
  - Fatigue [Unknown]

NARRATIVE: CASE EVENT DATE: 20210301
